FAERS Safety Report 8470500-6 (Version None)
Quarter: 2012Q2

REPORT INFORMATION
  Report Type: 
  Country: None (occurrence: None)
  Receive Date: 20120627
  Receipt Date: 20110712
  Transmission Date: 20120825
  Serious: No
  Sender: FDA-Public Use
  Company Number: US-MYLANLABS-2011S1014673

PATIENT
  Age: 79 Year
  Sex: Female
  Weight: 71.22 kg

DRUGS (5)
  1. SYNTHROID [Concomitant]
  2. PERFOROMIST [Suspect]
     Indication: DYSPNOEA
     Route: 055
     Dates: start: 20110701, end: 20110713
  3. METFORMIN HCL [Concomitant]
  4. SIMVASTATIN [Concomitant]
  5. ALPHAGAN [Concomitant]

REACTIONS (1)
  - MYALGIA [None]
